FAERS Safety Report 8005599-4 (Version None)
Quarter: 2011Q4

REPORT INFORMATION
  Report Type: 
  Country: None (occurrence: None)
  Receive Date: 20111223
  Receipt Date: 20111219
  Transmission Date: 20120403
  Serious: Yes (Death, Hospitalization)
  Sender: FDA-Public Use
  Company Number: JP-PFIZER INC-2011307932

PATIENT
  Age: 70 Year
  Sex: Male

DRUGS (8)
  1. OLMESARTAN MEDOXOMIL [Concomitant]
     Dosage: 40 MG, DAILY
     Route: 048
  2. ALMARL [Concomitant]
     Dosage: 20 MG, DAILY
     Route: 048
  3. LYRICA [Suspect]
     Indication: INTERVERTEBRAL DISC PROTRUSION
     Dosage: 75 MG, 2X/DAY
     Route: 048
     Dates: start: 20111213
  4. NORVASC [Concomitant]
     Dosage: 20 MG DAILY
     Route: 048
  5. TRICHLORMETHIAZIDE [Concomitant]
     Dosage: 1 MG, DAILY
  6. SELBEX [Concomitant]
  7. FLUTICASONE PROPIONATE [Concomitant]
     Dosage: UNK
  8. ZANTAC [Concomitant]

REACTIONS (3)
  - CARDIAC FAILURE CONGESTIVE [None]
  - PULMONARY ALVEOLAR HAEMORRHAGE [None]
  - PNEUMONIA [None]
